FAERS Safety Report 8862909 (Version 1)
Quarter: 2012Q4

REPORT INFORMATION
  Report Type: 
  Country: FR (occurrence: FR)
  Receive Date: 20121026
  Receipt Date: 20121026
  Transmission Date: 20130627
  Serious: Yes (Hospitalization, Other)
  Sender: FDA-Public Use
  Company Number: FR-PFIZER INC-2012261437

PATIENT
  Age: 51 Year
  Sex: Male

DRUGS (4)
  1. TAHOR [Suspect]
     Indication: HYPERCHOLESTEROLAEMIA
     Dosage: 2 dosage forms (20 mg) once daily
     Route: 048
     Dates: start: 20120306, end: 20120608
  2. STAGID [Concomitant]
     Indication: DIABETES MELLITUS
     Dosage: 700 mg, one in the evening
     Dates: start: 2011
  3. DOLIPRANE [Concomitant]
     Dosage: on demand
     Dates: start: 20120308
  4. COUMADINE [Concomitant]
     Indication: ANTICOAGULANT THERAPY
     Dosage: 5 mg, 1.5 tablets (7.5 mg) in the evening
     Dates: start: 20120302

REACTIONS (3)
  - Abdominal pain [Recovered/Resolved]
  - Cholelithiasis [Unknown]
  - Colitis [Unknown]
